FAERS Safety Report 19185845 (Version 2)
Quarter: 2021Q2

REPORT INFORMATION
  Report Type: Spontaneous
  Country: RU (occurrence: RU)
  Receive Date: 20210427
  Receipt Date: 20210604
  Transmission Date: 20210717
  Serious: Yes (Other)
  Sender: FDA-Public Use
  Company Number: RU-STRIDES ARCOLAB LIMITED-2021SP004686

PATIENT
  Age: 1 Decade
  Sex: Male

DRUGS (11)
  1. PREDNISOLONE. [Suspect]
     Active Substance: PREDNISOLONE
     Indication: HYPERSENSITIVITY
     Dosage: 60 MILLIGRAM (2ML)
     Route: 030
  2. PREDNISOLONE. [Suspect]
     Active Substance: PREDNISOLONE
     Indication: PREMEDICATION
     Dosage: UNK
     Route: 065
  3. PREDNISOLONE. [Suspect]
     Active Substance: PREDNISOLONE
     Indication: URTICARIA
     Dosage: UNK
     Route: 065
  4. IDURSULFASE [Concomitant]
     Active Substance: IDURSULFASE
     Dosage: UNK (PERIPHERAL CATHETER)
     Route: 065
  5. IDURSULFASE [Concomitant]
     Active Substance: IDURSULFASE
     Dosage: 8 MILLIGRAM PER HOUR (INFUSION)
     Route: 042
  6. CHLOROPYRAMINE [Concomitant]
     Active Substance: CHLOROPYRAMINE
     Indication: PREMEDICATION
     Dosage: UNK
     Route: 042
  7. CHLOROPYRAMINE [Concomitant]
     Active Substance: CHLOROPYRAMINE
     Indication: URTICARIA
     Dosage: 1 DOSAGE FORM, QD IN THE EVENING OF THERAPY TABLET
     Route: 065
  8. IDURSULFASE [Concomitant]
     Active Substance: IDURSULFASE
     Indication: MUCOPOLYSACCHARIDOSIS II
     Dosage: 0.5 MILLIGRAM/KILOGRAM (18 MG), ONCE A WEEK DILUTED IN 100 ML OF 0.9% SODIUM?CHLORIDE (NACL) SOLUTIO
     Route: 042
  9. CHLOROPYRAMINE [Concomitant]
     Active Substance: CHLOROPYRAMINE
     Indication: HYPERSENSITIVITY
     Dosage: UNK
     Route: 065
  10. IDURSULFASE [Concomitant]
     Active Substance: IDURSULFASE
     Dosage: 16 MILLILITER PER HOUR (INFUSION)
     Route: 042
  11. SODIUM CHLORIDE. [Concomitant]
     Active Substance: SODIUM CHLORIDE
     Indication: MUCOPOLYSACCHARIDOSIS II
     Dosage: 100 MILLILITER, ONCE A WEEK
     Route: 042

REACTIONS (4)
  - Erythema [Unknown]
  - Agitation [Unknown]
  - Aggression [Unknown]
  - Toxicity to various agents [Unknown]
